FAERS Safety Report 5755628-3 (Version None)
Quarter: 2008Q2

REPORT INFORMATION
  Report Type: 
  Country: None (occurrence: None)
  Receive Date: 20080602
  Receipt Date: 20080521
  Transmission Date: 20081010
  Serious: Yes (Disabling, Other)
  Sender: FDA-Public Use
  Company Number: US-MERCK-0705USA01553

PATIENT
  Age: 46 Year
  Sex: Female

DRUGS (2)
  1. FOSAMAX [Suspect]
     Indication: ANKLE FRACTURE
     Route: 048
  2. LOPID [Concomitant]
     Indication: BLOOD CHOLESTEROL INCREASED
     Route: 065
     Dates: start: 19720101

REACTIONS (12)
  - ABSCESS [None]
  - ADVERSE EVENT [None]
  - CEREBROVASCULAR ACCIDENT [None]
  - GINGIVAL BLEEDING [None]
  - GINGIVAL DISORDER [None]
  - ORAL DISORDER [None]
  - ORAL INFECTION [None]
  - PAIN IN JAW [None]
  - SWELLING [None]
  - TOOTH INFECTION [None]
  - TOOTH LOSS [None]
  - TRANSIENT ISCHAEMIC ATTACK [None]
